FAERS Safety Report 9543819 (Version 2)
Quarter: 2013Q4

REPORT INFORMATION
  Report Type: Spontaneous
  Country: FR (occurrence: FR)
  Receive Date: 20130923
  Receipt Date: 20131003
  Transmission Date: 20140711
  Serious: Yes (Death)
  Sender: FDA-Public Use
  Company Number: FR-ASTRAZENECA-2013SE70247

PATIENT
  Age: 5019 Day
  Sex: Male

DRUGS (21)
  1. NAROPEINE [Suspect]
     Route: 065
     Dates: start: 20130530, end: 20130530
  2. NALBUPHINE RENAUDIN (NON-AZ PRODUCT) [Suspect]
     Route: 042
     Dates: start: 20130530, end: 20130530
  3. NALBUPHINE RENAUDIN (NON-AZ PRODUCT) [Suspect]
     Route: 042
     Dates: start: 20130531
  4. NOZINAN [Suspect]
     Route: 048
     Dates: start: 20130530, end: 20130530
  5. NOZINAN [Suspect]
     Route: 048
     Dates: start: 20130531
  6. ATARAX [Suspect]
     Route: 048
     Dates: start: 20130530, end: 20130530
  7. ATARAX [Suspect]
     Route: 048
     Dates: start: 20130531
  8. TOPALGIC S R [Suspect]
     Route: 048
     Dates: start: 20130530, end: 20130530
  9. HYPNOVEL [Suspect]
     Route: 042
     Dates: start: 20130530, end: 20130530
  10. HYPNOVEL [Suspect]
     Route: 042
     Dates: start: 20130531
  11. PERFALGAN [Concomitant]
     Dosage: AT 12 HR, 1 G AND AT 18 HR 1 G.
     Dates: start: 20130530
  12. PERFALGAN [Concomitant]
     Dates: start: 20130531
  13. PROFENID [Concomitant]
     Dates: start: 20130530
  14. ACUPAN [Concomitant]
     Dosage: 5 VIALS AT ELECTRIC SYRINGE/D
  15. CEFAZOLINE [Concomitant]
     Dosage: 1 G AT 12 H, 1 G AT 18 H
     Dates: start: 20130530
  16. CEFAZOLINE [Concomitant]
     Dates: start: 20130531
  17. CATAPRESSAN [Concomitant]
     Dates: start: 20130530
  18. CATAPRESSAN [Concomitant]
     Dates: start: 20130531
  19. DETENSIEL [Concomitant]
  20. INEXIUM [Concomitant]
     Dates: start: 20130530
  21. POLARAMINE [Concomitant]

REACTIONS (1)
  - Cardio-respiratory arrest [Fatal]
